FAERS Safety Report 6466399-X (Version None)
Quarter: 2009Q4

REPORT INFORMATION
  Report Type: 
  Country: None (occurrence: None)
  Receive Date: 20091202
  Receipt Date: 20091123
  Transmission Date: 20100525
  Serious: Yes (Disabling)
  Sender: FDA-Public Use
  Company Number: PHHY2009IT51928

PATIENT
  Sex: Female

DRUGS (8)
  1. AREDIA [Suspect]
     Indication: METASTASES TO BONE
     Dosage: 90 MG, QMO
     Route: 042
  2. ZOMETA [Suspect]
     Indication: METASTASES TO BONE
     Dosage: 4 MG CYCLIC
     Route: 042
     Dates: start: 20040701, end: 20060101
  3. EPIRUBICIN HYDROCHLORIDE [Concomitant]
  4. DOCETAXEL [Concomitant]
     Route: 042
  5. VINORELBINE [Concomitant]
     Route: 042
  6. CYCLOPHOSPHAMIDE [Concomitant]
     Route: 042
  7. METHOTREXATE [Concomitant]
     Route: 042
  8. FLUOROURACIL [Concomitant]
     Route: 042

REACTIONS (2)
  - BONE OPERATION [None]
  - OSTEONECROSIS [None]
